FAERS Safety Report 17431706 (Version 1)
Quarter: 2020Q1

REPORT INFORMATION
  Report Type: Spontaneous
  Country: US (occurrence: US)
  Receive Date: 20200218
  Receipt Date: 20200218
  Transmission Date: 20200409
  Serious: No
  Sender: FDA-Public Use
  Company Number: US-UNITED THERAPEUTICS-UNT-2020-002539

PATIENT
  Sex: Female

DRUGS (2)
  1. TYVASO [Suspect]
     Active Substance: TREPROSTINIL
     Indication: PULMONARY ARTERIAL HYPERTENSION
     Dosage: UNK
     Dates: start: 20190922
  2. TYVASO [Suspect]
     Active Substance: TREPROSTINIL
     Dosage: UP TO 9 BREATHS, QID

REACTIONS (2)
  - Headache [Unknown]
  - Dyspnoea [Unknown]
